FAERS Safety Report 4773232-0 (Version None)
Quarter: 2005Q3

REPORT INFORMATION
  Report Type: 
  Country: None (occurrence: None)
  Receive Date: 20050919
  Receipt Date: 20050629
  Transmission Date: 20060218
  Serious: Yes (Life-Threatening, Hospitalization, Disabling, Other)
  Sender: FDA-Public Use
  Company Number: US-MERCK-0507USA00192

PATIENT
  Age: 61 Year
  Sex: Male
  Weight: 103 kg

DRUGS (7)
  1. VIOXX [Suspect]
     Indication: RHEUMATOID ARTHRITIS
     Route: 048
     Dates: start: 19991130, end: 20040901
  2. LOPRESSOR [Concomitant]
     Indication: MIGRAINE
     Route: 065
     Dates: start: 19800101
  3. BIAXIN [Concomitant]
     Route: 065
     Dates: start: 20000909
  4. CLINDAMYCIN [Concomitant]
     Route: 065
     Dates: start: 19991124, end: 20050124
  5. LIPITOR [Concomitant]
     Indication: BLOOD CHOLESTEROL INCREASED
     Route: 065
     Dates: start: 19970707, end: 20050225
  6. METOPROLOL [Concomitant]
     Indication: MIGRAINE
     Route: 065
     Dates: start: 20000311, end: 20050209
  7. PRILOSEC [Concomitant]
     Indication: GASTRIC ULCER
     Route: 065
     Dates: start: 19970606, end: 20020202

REACTIONS (54)
  - ANGINA PECTORIS [None]
  - ANXIETY [None]
  - ARTHRALGIA [None]
  - BLOOD GLUCOSE INCREASED [None]
  - BLOOD POTASSIUM DECREASED [None]
  - BRADYCARDIA [None]
  - BUNDLE BRANCH BLOCK LEFT [None]
  - CARDIOMEGALY [None]
  - CAROTID PULSE DECREASED [None]
  - CERUMEN IMPACTION [None]
  - CHONDROCALCINOSIS [None]
  - CORONARY ARTERY DISEASE [None]
  - CORONARY ARTERY OCCLUSION [None]
  - CRYING [None]
  - DEPRESSION [None]
  - DIASTOLIC DYSFUNCTION [None]
  - DRUG INTERACTION [None]
  - DYSPNOEA [None]
  - ERECTILE DYSFUNCTION [None]
  - FATIGUE [None]
  - FIBROUS HISTIOCYTOMA [None]
  - FINGER AMPUTATION [None]
  - GASTROOESOPHAGEAL REFLUX DISEASE [None]
  - HYPERSENSITIVITY [None]
  - HYPERTENSION [None]
  - INJURY [None]
  - INSOMNIA [None]
  - KYPHOSIS [None]
  - LABILE HYPERTENSION [None]
  - LIBIDO DECREASED [None]
  - LIMB TRAUMATIC AMPUTATION [None]
  - MIGRAINE [None]
  - MITRAL VALVE INCOMPETENCE [None]
  - MUSCLE SPASMS [None]
  - MUSCLE TWITCHING [None]
  - MYOCARDIAL INFARCTION [None]
  - MYOCARDIAL ISCHAEMIA [None]
  - NEPHROLITHIASIS [None]
  - PAIN IN EXTREMITY [None]
  - PRURITUS [None]
  - RESTLESS LEGS SYNDROME [None]
  - ROAD TRAFFIC ACCIDENT [None]
  - SCOLIOSIS [None]
  - SKIN DISORDER [None]
  - SLEEP DISORDER [None]
  - SOMNOLENCE [None]
  - SPINAL OSTEOARTHRITIS [None]
  - STRESS [None]
  - TENOSYNOVITIS [None]
  - TOOTH DISORDER [None]
  - TRICUSPID VALVE INCOMPETENCE [None]
  - URINARY INCONTINENCE [None]
  - URINARY TRACT INFECTION [None]
  - WOUND INFECTION [None]
